FAERS Safety Report 6993627-4 (Version None)
Quarter: 2010Q3

REPORT INFORMATION
  Report Type: 
  Country: None (occurrence: None)
  Receive Date: 20100917
  Receipt Date: 20070808
  Transmission Date: 20110219
  Serious: Yes (Other)
  Sender: FDA-Public Use
  Company Number: US-ASTRAZENECA-2007UW09590

PATIENT
  Age: 638 Month
  Sex: Female
  Weight: 149.7 kg

DRUGS (19)
  1. SEROQUEL [Suspect]
     Indication: BIPOLAR DISORDER
     Dosage: 25 MG TO 200 MG
     Route: 048
     Dates: start: 19980507
  2. SEROQUEL [Suspect]
     Indication: DEPRESSION
     Dosage: 25 MG TO 200 MG
     Route: 048
     Dates: start: 19980507
  3. SEROQUEL [Suspect]
     Indication: SCHIZOPHRENIA
     Dosage: 25 MG TO 200 MG
     Route: 048
     Dates: start: 19980507
  4. SEROQUEL [Suspect]
     Indication: PARANOIA
     Dosage: 25 MG TO 200 MG
     Route: 048
     Dates: start: 19980507
  5. SEROQUEL [Suspect]
     Dosage: 15 TO 200 MG (CURRENTLY TAKES 200MG)
     Route: 048
     Dates: start: 20010401
  6. SEROQUEL [Suspect]
     Dosage: 15 TO 200 MG (CURRENTLY TAKES 200MG)
     Route: 048
     Dates: start: 20010401
  7. SEROQUEL [Suspect]
     Dosage: 15 TO 200 MG (CURRENTLY TAKES 200MG)
     Route: 048
     Dates: start: 20010401
  8. SEROQUEL [Suspect]
     Dosage: 15 TO 200 MG (CURRENTLY TAKES 200MG)
     Route: 048
     Dates: start: 20010401
  9. DEPAKOTE [Concomitant]
     Indication: BIPOLAR DISORDER
     Dosage: 500 MG TO 1500 MG
     Dates: start: 19970326
  10. BUSPAR [Concomitant]
     Dates: start: 19970507
  11. TRAZODONE HCL [Concomitant]
     Dates: start: 19970507
  12. EFFEXOR XR [Concomitant]
     Dates: start: 19970507
  13. CLONIDINE [Concomitant]
     Dates: start: 19970507
  14. SYNTHROID [Concomitant]
     Dates: start: 19970507
  15. GLUCOPHAGE [Concomitant]
     Dates: start: 19980602
  16. LIPITOR [Concomitant]
     Dates: start: 19980602
  17. DYAZIDE [Concomitant]
     Dates: start: 20020919
  18. LOTENSIN [Concomitant]
     Dates: start: 20020919
  19. NEURONTIN [Concomitant]
     Dates: start: 20020919

REACTIONS (1)
  - PANCREATITIS ACUTE [None]
